FAERS Safety Report 5984175-9 (Version None)
Quarter: 2008Q4

REPORT INFORMATION
  Report Type: 
  Country: None (occurrence: None)
  Receive Date: 20081208
  Receipt Date: 20081203
  Transmission Date: 20090506
  Serious: Yes (Other)
  Sender: FDA-Public Use
  Company Number: SE-SANOFI-SYNTHELABO-F01200801784

PATIENT

DRUGS (3)
  1. BEVACIZUMAB [Suspect]
     Dosage: UNK
     Route: 042
     Dates: start: 20081106, end: 20081106
  2. CAPECITABINE [Suspect]
     Dosage: UNK
     Route: 048
     Dates: start: 20081106, end: 20081106
  3. OXALIPLATIN [Suspect]
     Indication: COLORECTAL CANCER METASTATIC
     Dosage: UNK
     Route: 042
     Dates: start: 20081106, end: 20081106

REACTIONS (2)
  - ABDOMINAL PAIN UPPER [None]
  - PEPTIC ULCER [None]
